FAERS Safety Report 14128346 (Version 2)
Quarter: 2019Q4

REPORT INFORMATION
  Report Type: Spontaneous
  Country: JP (occurrence: JP)
  Receive Date: 20171026
  Receipt Date: 20191105
  Transmission Date: 20200122
  Serious: Yes (Other)
  Sender: FDA-Public Use
  Company Number: JP-BAYER-2017-198729

PATIENT
  Age: 77 Year
  Sex: Male

DRUGS (2)
  1. XOFIGO [Suspect]
     Active Substance: RADIUM RA-223 DICHLORIDE
     Indication: METASTASES TO BONE
  2. XOFIGO [Suspect]
     Active Substance: RADIUM RA-223 DICHLORIDE
     Indication: HORMONE-REFRACTORY PROSTATE CANCER
     Dosage: 3.2 MBQ, Q1MON, 4 TIMES
     Route: 042
     Dates: start: 20170322, end: 20170614

REACTIONS (8)
  - Nausea [Unknown]
  - Prostatic specific antigen increased [Unknown]
  - Hormone-refractory prostate cancer [None]
  - Metastases to liver [Not Recovered/Not Resolved]
  - Hypoaesthesia [Unknown]
  - Abdominal discomfort [Unknown]
  - Palpitations [Unknown]
  - Blood alkaline phosphatase increased [Unknown]
